FAERS Safety Report 15615625 (Version 2)
Quarter: 2018Q4

REPORT INFORMATION
  Report Type: Spontaneous
  Country: US (occurrence: US)
  Receive Date: 20181114
  Receipt Date: 20181116
  Transmission Date: 20190205
  Serious: Yes (Other)
  Sender: FDA-Public Use
  Company Number: US-TEVA-2017-US-831948

PATIENT
  Sex: Female

DRUGS (1)
  1. OXYCODONE/APAP [Suspect]
     Active Substance: ACETAMINOPHEN\OXYCODONE HYDROCHLORIDE
     Indication: BACK PAIN
     Dosage: DOSE STRENGTH:  5/325MG, TOOK ONE TABLET IN THE MORNING AND TWO TABLET
     Dates: start: 201703, end: 20171127

REACTIONS (8)
  - Insomnia [Unknown]
  - Hot flush [Unknown]
  - Chills [Unknown]
  - Night sweats [Unknown]
  - Nausea [Unknown]
  - Dehydration [Unknown]
  - Progesterone decreased [Unknown]
  - Decreased appetite [Unknown]

NARRATIVE: CASE EVENT DATE: 201703
